FAERS Safety Report 6595727-X (Version None)
Quarter: 2010Q1

REPORT INFORMATION
  Report Type: 
  Country: None (occurrence: None)
  Receive Date: 20100219
  Receipt Date: 20100219
  Transmission Date: 20100710
  Serious: Yes (Other)
  Sender: FDA-Public Use
  Company Number: None

PATIENT
  Sex: Male
  Weight: 99.7913 kg

DRUGS (2)
  1. PRISTIQ [Suspect]
     Indication: GENERALISED ANXIETY DISORDER
     Dosage: 50MG 1 PER DAY ORAL
     Route: 048
     Dates: start: 20090901, end: 20100101
  2. PRISTIQ [Suspect]
     Indication: MAJOR DEPRESSION
     Dosage: 50MG 1 PER DAY ORAL
     Route: 048
     Dates: start: 20090901, end: 20100101

REACTIONS (4)
  - ANXIETY [None]
  - APPARENT DEATH [None]
  - SUICIDAL IDEATION [None]
  - WEIGHT INCREASED [None]
